FAERS Safety Report 8596033-4 (Version None)
Quarter: 2012Q3

REPORT INFORMATION
  Report Type: 
  Country: None (occurrence: None)
  Receive Date: 20120801
  Receipt Date: 20120718
  Transmission Date: 20120928
  Serious: Yes (Hospitalization, Other)
  Sender: FDA-Public Use
  Company Number: JP-2012-15784

PATIENT
  Age: 86 Year
  Sex: Female
  Weight: 43 kg

DRUGS (8)
  1. LASIX [Concomitant]
  2. FOLLAMIN (FOLIC ACID) [Concomitant]
  3. WARFARIN SODIUM [Concomitant]
  4. FAMOTIDINE D (FAMOTIDINE) [Concomitant]
  5. FERROMIA (FERROUS SODIUM CITRATE) [Concomitant]
  6. ALDACTONE [Concomitant]
  7. JUVEIA (TOCOPHERYL ACETATE) [Concomitant]
  8. SAMSCA [Suspect]
     Indication: CARDIAC FAILURE CONGESTIVE
     Dosage: 7.5 MG MILLIGRAM(S), QAM, ORAL
     Route: 048
     Dates: start: 20120628, end: 20120706

REACTIONS (8)
  - SUBILEUS [None]
  - ABDOMINAL PAIN [None]
  - HEPATIC ARTERY EMBOLISM [None]
  - HEPATIC ENZYME INCREASED [None]
  - LIVER DISORDER [None]
  - CONSTIPATION [None]
  - BLOOD UREA INCREASED [None]
  - COLITIS ISCHAEMIC [None]
